FAERS Safety Report 5387261-X (Version None)
Quarter: 2007Q3

REPORT INFORMATION
  Report Type: 
  Country: None (occurrence: None)
  Receive Date: 20070711
  Receipt Date: 20070629
  Transmission Date: 20080115
  Serious: Yes (Death)
  Sender: FDA-Public Use
  Company Number: MEDI-0005847

PATIENT
  Age: 13 Month
  Sex: Female

DRUGS (12)
  1. SYNAGIS [Suspect]
     Indication: ANTIVIRAL PROPHYLAXIS
     Dosage: SEE IMAGE
     Dates: start: 20060927, end: 20061206
  2. SYNAGIS [Suspect]
     Indication: ANTIVIRAL PROPHYLAXIS
     Dosage: SEE IMAGE
     Dates: start: 20060927
  3. SYNAGIS [Suspect]
     Indication: ANTIVIRAL PROPHYLAXIS
     Dosage: SEE IMAGE
     Dates: start: 20061011
  4. SYNAGIS [Suspect]
     Indication: ANTIVIRAL PROPHYLAXIS
     Dosage: SEE IMAGE
     Dates: start: 20061108
  5. AMOXICILLIN HYDRATE (AMOXICILLIN) [Concomitant]
  6. ANTIBIOTICS RESISTANT LACTIC ACID BACTERIAE [Concomitant]
  7. IMIDAPRIL HYDROCHLORIDE (IMIDAPRIL HYDROCHLORIDE) [Concomitant]
  8. FUROSEMIDE [Concomitant]
  9. SPIRONOLACTONE [Concomitant]
  10. ASPIRIN [Concomitant]
  11. WARFARIN SODIUM [Concomitant]
  12. NITROGLYCERIN [Concomitant]

REACTIONS (2)
  - SHOCK [None]
  - SUPRAVENTRICULAR TACHYCARDIA [None]
